FAERS Safety Report 15729169 (Version 1)
Quarter: 2018Q4

REPORT INFORMATION
  Report Type: Spontaneous
  Country: US (occurrence: US)
  Receive Date: 20181215
  Receipt Date: 20181215
  Transmission Date: 20190205
  Serious: Yes (Disabling)
  Sender: FDA-Public Use
  Company Number: None

PATIENT
  Age: 92 Year
  Sex: Female
  Weight: 78.75 kg

DRUGS (1)
  1. ELIQUIS [Suspect]
     Active Substance: APIXABAN
     Indication: HEART RATE INCREASED
     Route: 048

REACTIONS (6)
  - Loss of personal independence in daily activities [None]
  - Fluid retention [None]
  - Dry eye [None]
  - Visual impairment [None]
  - Peripheral swelling [None]
  - Mobility decreased [None]

NARRATIVE: CASE EVENT DATE: 20181214
